FAERS Safety Report 5152089-2 (Version None)
Quarter: 2006Q4

REPORT INFORMATION
  Report Type: 
  Country: None (occurrence: None)
  Receive Date: 20061113
  Receipt Date: 20061113
  Transmission Date: 20070319
  Serious: No
  Sender: FDA-Public Use
  Company Number: None

PATIENT
  Sex: Male

DRUGS (1)
  1. POLYETHYLENE GLYCOL [Suspect]
     Indication: IRRITABLE BOWEL SYNDROME
     Dosage: MIX ONE CAPFUL (17 GRAMS) IN WATER OR JUICE AND DRINK THREE TIMES A DAY
     Dates: start: 20060930

REACTIONS (2)
  - DYSGEUSIA [None]
  - PHARMACEUTICAL PRODUCT COMPLAINT [None]
